FAERS Safety Report 7645613-9 (Version None)
Quarter: 2011Q3

REPORT INFORMATION
  Report Type: 
  Country: None (occurrence: None)
  Receive Date: 20110729
  Receipt Date: 20110722
  Transmission Date: 20111222
  Serious: Yes (Hospitalization)
  Sender: FDA-Public Use
  Company Number: PHHY2011DK66094

PATIENT
  Sex: Male
  Weight: 93 kg

DRUGS (3)
  1. MAGNYL [Concomitant]
  2. SIMVASTATIN [Suspect]
     Indication: HYPERCHLORAEMIA
     Dates: start: 20070101, end: 20110713
  3. LOSARTAN POTASSIUM [Concomitant]

REACTIONS (5)
  - CHEST PAIN [None]
  - ACUTE CORONARY SYNDROME [None]
  - HEPATIC STEATOSIS [None]
  - HEPATIC ENZYME INCREASED [None]
  - DYSPNOEA [None]
